FAERS Safety Report 13304254 (Version 1)
Quarter: 2017Q1

REPORT INFORMATION
  Report Type: Report from Study
  Country: JP (occurrence: JP)
  Receive Date: 20170308
  Receipt Date: 20170308
  Transmission Date: 20170428
  Serious: Yes (Other)
  Sender: FDA-Public Use
  Company Number: JP-BRISTOL-MYERS SQUIBB COMPANY-BMS-2017-019103

PATIENT
  Sex: Female

DRUGS (1)
  1. IPILIMUMAB [Suspect]
     Active Substance: IPILIMUMAB
     Indication: MALIGNANT MELANOMA
     Dosage: 3 MG, Q2WK
     Route: 041
     Dates: start: 20170106

REACTIONS (3)
  - Hypoglycaemia [Unknown]
  - Malignant neoplasm progression [Unknown]
  - Delirium [Unknown]

NARRATIVE: CASE EVENT DATE: 20170217
